FAERS Safety Report 16665754 (Version 1)
Quarter: 2019Q3

REPORT INFORMATION
  Report Type: Spontaneous
  Country: US (occurrence: US)
  Receive Date: 20190804
  Receipt Date: 20190804
  Transmission Date: 20191004
  Serious: No
  Sender: FDA-Public Use
  Company Number: US-ABBVIE-19S-163-2672153-00

PATIENT
  Age: 57 Year
  Sex: Female
  Weight: 122.02 kg

DRUGS (4)
  1. NEURONTIN [Suspect]
     Active Substance: GABAPENTIN
     Indication: PAIN
     Route: 065
     Dates: start: 2001
  2. DEPAKOTE [Suspect]
     Active Substance: DIVALPROEX SODIUM
     Route: 065
     Dates: end: 1996
  3. NEURONTIN [Suspect]
     Active Substance: GABAPENTIN
     Dosage: DOUBLE DOSE IN THE MORNING AND AT NIGHT
     Route: 065
  4. DEPAKOTE [Suspect]
     Active Substance: DIVALPROEX SODIUM
     Indication: PAIN
     Route: 065
     Dates: start: 1994

REACTIONS (12)
  - Road traffic accident [Unknown]
  - Road traffic accident [Unknown]
  - Road traffic accident [Unknown]
  - Road traffic accident [Unknown]
  - Road traffic accident [Unknown]
  - Concussion [Unknown]
  - Injury [Unknown]
  - Drug ineffective [Unknown]
  - Weight increased [Unknown]
  - Drug ineffective [Unknown]
  - Road traffic accident [Unknown]
  - Road traffic accident [Unknown]

NARRATIVE: CASE EVENT DATE: 1994
